FAERS Safety Report 26124159 (Version 1)
Quarter: 2025Q4

REPORT INFORMATION
  Report Type: Spontaneous
  Country: US (occurrence: US)
  Receive Date: 20251205
  Receipt Date: 20251205
  Transmission Date: 20260117
  Serious: No
  Sender: BIOGEN
  Company Number: US-BIOGEN-2093856

PATIENT
  Age: 56 Year
  Sex: Male

DRUGS (1)
  1. VUMERITY [Suspect]
     Active Substance: DIROXIMEL FUMARATE
     Indication: Product used for unknown indication

REACTIONS (3)
  - Flushing [Recovered/Resolved]
  - Paraesthesia [Recovered/Resolved]
  - Pain [Recovered/Resolved]
